FAERS Safety Report 6912923-X (Version None)
Quarter: 2010Q3

REPORT INFORMATION
  Report Type: 
  Country: None (occurrence: None)
  Receive Date: 20100806
  Receipt Date: 20090329
  Transmission Date: 20110219
  Serious: No
  Sender: FDA-Public Use
  Company Number: US-PFIZER INC-2009160872

PATIENT
  Sex: Female
  Weight: 59 kg

DRUGS (9)
  1. DETROL LA [Suspect]
     Dates: start: 20081201
  2. SYNTHROID [Concomitant]
     Indication: THYROID DISORDER
  3. ACTONEL [Concomitant]
     Indication: OSTEOPOROSIS
  4. CALTRATE [Concomitant]
     Indication: OSTEOPOROSIS
  5. LUTEIN [Concomitant]
     Indication: MACULAR DEGENERATION
  6. LOVAZA [Concomitant]
  7. MULTI-VITAMINS [Concomitant]
  8. AMINO ACIDS [Concomitant]
  9. HERBAL PREPARATION [Concomitant]

REACTIONS (4)
  - ABDOMINAL DISTENSION [None]
  - DIARRHOEA [None]
  - DRUG DOSE OMISSION [None]
  - INSOMNIA [None]
